FAERS Safety Report 5407595-X (Version None)
Quarter: 2007Q3

REPORT INFORMATION
  Report Type: 
  Country: None (occurrence: None)
  Receive Date: 20070807
  Receipt Date: 20070727
  Transmission Date: 20080115
  Serious: Yes (Other)
  Sender: FDA-Public Use
  Company Number: US-PFIZER INC-2007063667

PATIENT
  Sex: Male
  Weight: 70.454 kg

DRUGS (6)
  1. CADUET [Suspect]
     Indication: BLOOD PRESSURE
     Dates: start: 20070101, end: 20070701
  2. CADUET [Suspect]
     Indication: BLOOD CHOLESTEROL
  3. AMLODIPINE [Concomitant]
  4. MELOXICAM [Concomitant]
  5. BENAZEPRIL HYDROCHLORIDE [Concomitant]
  6. VALSARTAN [Concomitant]

REACTIONS (5)
  - BALANCE DISORDER [None]
  - DIZZINESS [None]
  - GAIT DISTURBANCE [None]
  - MUSCLE DISORDER [None]
  - PAIN IN EXTREMITY [None]
